FAERS Safety Report 5688194-1 (Version None)
Quarter: 2008Q1

REPORT INFORMATION
  Report Type: 
  Country: None (occurrence: None)
  Receive Date: 20080327
  Receipt Date: 20080214
  Transmission Date: 20080703
  Serious: Yes (Hospitalization, Other)
  Sender: FDA-Public Use
  Company Number: 2008AL001632

PATIENT
  Age: 81 Year
  Sex: Male

DRUGS (7)
  1. NAPROXEN [Suspect]
     Dosage: 500 MG; BID; PO
     Route: 048
     Dates: start: 20080121, end: 20080201
  2. CITALOPRAM HYDROBROMIDE [Concomitant]
  3. MIRTAZAPINE [Concomitant]
  4. METFORMIN HCL [Concomitant]
  5. SIMVASTATIN [Concomitant]
  6. RAMIPRIL [Concomitant]
  7. ASPIRIN [Concomitant]

REACTIONS (1)
  - RENAL IMPAIRMENT [None]
